FAERS Safety Report 24593401 (Version 2)
Quarter: 2024Q4

REPORT INFORMATION
  Report Type: Spontaneous
  Country: US (occurrence: US)
  Receive Date: 20241108
  Receipt Date: 20241226
  Transmission Date: 20250114
  Serious: No
  Sender: FDC LIMITED
  Company Number: US-FDC-2024USSPO00813

PATIENT
  Age: 65 Year
  Sex: Female
  Weight: 63.5 kg

DRUGS (1)
  1. TIMOLOL MALEATE [Suspect]
     Active Substance: TIMOLOL MALEATE
     Indication: Glaucoma
     Route: 047
     Dates: start: 20240911

REACTIONS (3)
  - Accidental overdose [Unknown]
  - Product design issue [Unknown]
  - Product use complaint [Unknown]

NARRATIVE: CASE EVENT DATE: 20240101
